FAERS Safety Report 10477682 (Version 1)
Quarter: 2014Q3

REPORT INFORMATION
  Report Type: Spontaneous
  Country: US (occurrence: None)
  Receive Date: 20140925
  Receipt Date: 20140925
  Transmission Date: 20150326
  Serious: Yes (Other)
  Sender: FDA-Public Use
  Company Number: None

PATIENT
  Age: 82 Year
  Sex: Male
  Weight: 81.4 kg

DRUGS (1)
  1. FLOMAX [Suspect]
     Active Substance: TAMSULOSIN HYDROCHLORIDE
     Indication: BENIGN PROSTATIC HYPERPLASIA
     Dosage: 1, Q HS, PO?
     Route: 048
     Dates: start: 20140723, end: 20140808

REACTIONS (3)
  - Vision blurred [None]
  - Lacrimation increased [None]
  - Eye operation [None]

NARRATIVE: CASE EVENT DATE: 20140723
